FAERS Safety Report 16562008 (Version 2)
Quarter: 2020Q3

REPORT INFORMATION
  Report Type: Spontaneous
  Country: FR (occurrence: FR)
  Receive Date: 20190711
  Receipt Date: 20190808
  Transmission Date: 20201105
  Serious: Yes (Hospitalization, Other)
  Sender: FDA-Public Use
  Company Number: FR-MYLANLABS-2019M1063681

PATIENT
  Age: 4 Year
  Sex: Female
  Weight: 53 kg

DRUGS (8)
  1. EPHEDRINE. [Suspect]
     Active Substance: EPHEDRINE
     Indication: INDUCTION OF ANAESTHESIA
     Dosage: UNK
     Route: 042
     Dates: start: 20181224, end: 20181224
  2. NEBCINE [Suspect]
     Active Substance: TOBRAMYCIN
     Indication: SURGERY
     Dosage: 200 MILLIGRAM, TOTAL
     Route: 042
     Dates: start: 20181224, end: 20181224
  3. TRAMADOL. [Suspect]
     Active Substance: TRAMADOL
     Indication: SURGERY
     Dosage: UNK
     Route: 042
     Dates: start: 20181224, end: 20181224
  4. PROPOFOL. [Suspect]
     Active Substance: PROPOFOL
     Indication: INDUCTION OF ANAESTHESIA
     Dosage: UNK
     Route: 042
     Dates: start: 20181224, end: 20181224
  5. SUFENTANIL [Suspect]
     Active Substance: SUFENTANIL
     Indication: INDUCTION OF ANAESTHESIA
     Dosage: UNK
     Route: 042
     Dates: start: 20181224, end: 20181224
  6. DEXAMETHASONE. [Suspect]
     Active Substance: DEXAMETHASONE
     Indication: SURGERY
     Dosage: 4 MILLIGRAM, QD
     Route: 042
     Dates: start: 20181224, end: 20181224
  7. PARACETAMOL [Suspect]
     Active Substance: ACETAMINOPHEN
     Indication: SURGERY
     Dosage: UNK
     Route: 042
     Dates: start: 20181224, end: 20181224
  8. CELOCURINE                         /00057702/ [Suspect]
     Active Substance: SUCCINYLCHOLINE CHLORIDE
     Indication: INDUCTION OF ANAESTHESIA
     Dosage: UNK
     Route: 042
     Dates: start: 20181224, end: 20181224

REACTIONS (5)
  - Metabolic acidosis [Recovered/Resolved]
  - Product use in unapproved indication [Unknown]
  - Rhabdomyolysis [Recovered/Resolved]
  - Acute kidney injury [Recovered/Resolved]
  - Acute hepatic failure [Recovered/Resolved]

NARRATIVE: CASE EVENT DATE: 20181225
